FAERS Safety Report 5291684-7 (Version None)
Quarter: 2007Q2

REPORT INFORMATION
  Report Type: 
  Country: None (occurrence: None)
  Receive Date: 20070410
  Receipt Date: 20070329
  Transmission Date: 20071010
  Serious: Yes (Hospitalization)
  Sender: FDA-Public Use
  Company Number: PHRM2007FR00811

PATIENT
  Age: 76 Year
  Sex: Female

DRUGS (5)
  1. COTAREG [Suspect]
     Indication: HYPERTENSION
     Dosage: 160/12.5 MG
     Route: 048
     Dates: end: 20070111
  2. COTAREG [Suspect]
     Dosage: 160/25 MG
     Route: 048
     Dates: start: 20070112
  3. NEBIVOLOL (TEMERIT) [Concomitant]
  4. LEVOTHYROXINE SODIUM [Concomitant]
  5. DEROXAT [Concomitant]

REACTIONS (2)
  - EPILEPSY [None]
  - HYPONATRAEMIA [None]
